FAERS Safety Report 4807532-2 (Version None)
Quarter: 2005Q4

REPORT INFORMATION
  Report Type: 
  Country: None (occurrence: None)
  Receive Date: 20051024
  Receipt Date: 20050706
  Transmission Date: 20060501
  Serious: Yes (Hospitalization)
  Sender: FDA-Public Use
  Company Number: US-ROCHE-410038

PATIENT
  Age: 50 Year
  Sex: Male
  Weight: 88.7 kg

DRUGS (12)
  1. PEGASYS [Suspect]
     Indication: HEPATITIS C
     Route: 058
     Dates: start: 20031010
  2. PEGASYS [Suspect]
     Route: 058
     Dates: start: 20040210, end: 20040226
  3. REBETOL [Suspect]
     Indication: HEPATITIS C
     Route: 048
     Dates: start: 20031010, end: 20040210
  4. PROCRIT [Suspect]
     Indication: ANAEMIA
     Dosage: REPORTED AS INJECTION.
     Route: 058
     Dates: start: 20031010
  5. PROCRIT [Suspect]
     Route: 058
     Dates: start: 20040226, end: 20040423
  6. VIAGRA [Suspect]
     Indication: DRUG USE FOR UNKNOWN INDICATION
     Route: 065
  7. PROCARDIA [Concomitant]
     Indication: HYPERTENSION
     Route: 048
     Dates: start: 20040409
  8. REGLAN [Concomitant]
     Dates: start: 20040409
  9. CELEXA [Concomitant]
     Dates: start: 20040409
  10. CITRUCEL [Concomitant]
     Dates: start: 20040409
  11. MULTI-VITAMIN [Concomitant]
     Dates: start: 20020520
  12. HYDROCHLOROTHIAZIDE [Concomitant]
     Dates: start: 20020520

REACTIONS (9)
  - ANTI-ERYTHROPOIETIN ANTIBODY POSITIVE [None]
  - APLASIA PURE RED CELL [None]
  - DISEASE RECURRENCE [None]
  - FATIGUE [None]
  - HAEMOGLOBIN DECREASED [None]
  - HAEMOLYSIS [None]
  - HEPATITIS C [None]
  - INJECTION SITE SWELLING [None]
  - SYNCOPE [None]
